FAERS Safety Report 25839698 (Version 1)
Quarter: 2025Q3

REPORT INFORMATION
  Report Type: Spontaneous
  Country: EU (occurrence: EU)
  Receive Date: 20250924
  Receipt Date: 20250924
  Transmission Date: 20251020
  Serious: Yes (Hospitalization, Other)
  Sender: MSN LABORATORIES PRIVATE LIMITED
  Company Number: None

PATIENT

DRUGS (76)
  1. PREGABALIN [Suspect]
     Active Substance: PREGABALIN
     Indication: Pain
     Dosage: 150 MICROGRAM, TWO TIMES A DAY
     Route: 048
  2. PREGABALIN [Suspect]
     Active Substance: PREGABALIN
     Dosage: 75 MICROGRAM, TWO TIMES A DAY
     Route: 048
  3. PREGABALIN [Suspect]
     Active Substance: PREGABALIN
     Dosage: 75 MG IN THE MORNING AND 75 MG IN THE EVENING
     Route: 065
  4. PREGABALIN [Suspect]
     Active Substance: PREGABALIN
     Route: 065
  5. TAPENTADOL [Suspect]
     Active Substance: TAPENTADOL
     Indication: Back pain
     Route: 065
  6. TAPENTADOL [Suspect]
     Active Substance: TAPENTADOL
     Indication: Myalgia
  7. FENTANYL [Suspect]
     Active Substance: FENTANYL
     Indication: Myalgia
     Dosage: REDUCED BY 25 MICROGRAM / H EVERY 2-3 WEEKS,
     Route: 062
  8. FENTANYL [Suspect]
     Active Substance: FENTANYL
     Route: 062
  9. FENTANYL [Suspect]
     Active Substance: FENTANYL
     Indication: Back pain
     Route: 062
  10. FENTANYL [Suspect]
     Active Substance: FENTANYL
     Indication: Pain
     Route: 045
  11. QUETIAPINE [Suspect]
     Active Substance: QUETIAPINE
     Indication: Product used for unknown indication
     Route: 065
  12. QUETIAPINE [Suspect]
     Active Substance: QUETIAPINE
     Dosage: 25 MILLIGRAM DAILY;/NIGHT
     Route: 065
  13. AMITRIPTYLINE [Suspect]
     Active Substance: AMITRIPTYLINE
     Indication: Product used for unknown indication
     Route: 065
  14. BUPRENORPHINE [Suspect]
     Active Substance: BUPRENORPHINE
     Indication: Pain
     Dosage: 35 MICROGRAM PER HOUR
     Route: 062
  15. CHLORPROTHIXENE [Suspect]
     Active Substance: CHLORPROTHIXENE
     Indication: Mixed anxiety and depressive disorder
     Dosage: 15 MG, BID (2/DAY)
     Route: 065
  16. FENTANYL CITRATE [Suspect]
     Active Substance: FENTANYL CITRATE
     Indication: Pain
     Dosage: 4800 MICROGRAM DAILY
     Route: 002
  17. FENTANYL CITRATE [Suspect]
     Active Substance: FENTANYL CITRATE
     Indication: Myalgia
     Dosage: 1 DOSAGE FORM, DAILY
  18. FENTANYL CITRATE [Suspect]
     Active Substance: FENTANYL CITRATE
     Dosage: UNK, REDUCED BY 1 TABLET EVERY 2 WEEKS
     Route: 048
  19. FENTANYL CITRATE [Suspect]
     Active Substance: FENTANYL CITRATE
     Dosage: 5 DOSAGE FORM, DAILY
     Route: 048
  20. FENTANYL CITRATE [Suspect]
     Active Substance: FENTANYL CITRATE
     Dosage: 400 MICROGRAM, TWO TIMES A DAY
  21. FENTANYL CITRATE [Suspect]
     Active Substance: FENTANYL CITRATE
     Dosage: 12 DOSAGE FORM, DAILY
     Route: 048
  22. FENTANYL CITRATE [Suspect]
     Active Substance: FENTANYL CITRATE
     Route: 065
  23. HYDROXYZINE [Suspect]
     Active Substance: HYDROXYZINE HYDROCHLORIDE
     Indication: Product used for unknown indication
     Dosage: 10 MG, QD (1/DAY)
     Route: 048
  24. QUETIAPINE [Suspect]
     Active Substance: QUETIAPINE
     Indication: Product used for unknown indication
     Route: 065
  25. MORPHINE [Suspect]
     Active Substance: MORPHINE
     Indication: Myalgia
     Route: 065
  26. MORPHINE [Suspect]
     Active Substance: MORPHINE
     Indication: Back pain
  27. OXYCODONE HYDROCHLORIDE [Suspect]
     Active Substance: OXYCODONE HYDROCHLORIDE
     Indication: Back pain
     Route: 065
  28. OXYCODONE HYDROCHLORIDE [Suspect]
     Active Substance: OXYCODONE HYDROCHLORIDE
     Indication: Myalgia
  29. SERTRALINE [Suspect]
     Active Substance: SERTRALINE HYDROCHLORIDE
     Indication: Mixed anxiety and depressive disorder
     Route: 065
  30. TIANEPTINE SODIUM [Suspect]
     Active Substance: TIANEPTINE SODIUM
     Indication: Mixed anxiety and depressive disorder
     Dosage: 12.5 MG, TID (3/DAY)
     Route: 065
  31. VENLAFAXINE [Suspect]
     Active Substance: VENLAFAXINE HYDROCHLORIDE
     Indication: Product used for unknown indication
     Route: 065
  32. CHONDROITIN SULFATE SODIUM NOS [Suspect]
     Active Substance: CHONDROITIN SULFATE SODIUM NOS
     Indication: Product used for unknown indication
     Dosage: 1000 MILLIGRAM DAILY;
     Route: 048
  33. CHONDROITIN SULFATE SODIUM NOS [Suspect]
     Active Substance: CHONDROITIN SULFATE SODIUM NOS
     Dosage: 1 DOSAGE FORM, TWO TIMES A DAY
     Route: 065
  34. BISOPROLOL [Concomitant]
     Active Substance: BISOPROLOL
     Indication: Product used for unknown indication
     Dosage: 0.5 DOSAGE FORM, ONCE A DAY
     Route: 048
  35. BISOPROLOL [Concomitant]
     Active Substance: BISOPROLOL
     Route: 048
  36. BISOPROLOL [Concomitant]
     Active Substance: BISOPROLOL
     Route: 065
  37. CAPTOPRIL [Concomitant]
     Active Substance: CAPTOPRIL
     Indication: Product used for unknown indication
     Route: 048
  38. CHOLESTEROL HERBAL PREPARATION [Concomitant]
     Indication: Product used for unknown indication
     Dosage: (DOSE AND UNITS NOT PROVIDED), BID (2/DAY)
     Route: 048
  39. INDAPAMIDE [Concomitant]
     Active Substance: INDAPAMIDE
     Dosage: 1 DOSAGE FORMS DAILY;
     Route: 048
  40. DULOXETINE [Concomitant]
     Active Substance: DULOXETINE
     Indication: Product used for unknown indication
     Dosage: 60 MILLIGRAM IN MORNING
     Route: 065
  41. DULOXETINE [Concomitant]
     Active Substance: DULOXETINE
     Dosage: 30 MILLIGRAM IN MORNING
     Route: 065
  42. DUSPATALIN RETARD [Concomitant]
     Indication: Product used for unknown indication
     Dosage: 1 DOSAGE FORM, TWO TIMES A DAY
     Route: 048
  43. DUSPATALIN RETARD [Concomitant]
     Dosage: UNK, BID (2/DAY)
     Route: 065
  44. BROMHEXINE HYDROCHLORIDE [Concomitant]
     Active Substance: BROMHEXINE HYDROCHLORIDE
     Indication: Product used for unknown indication
     Dosage: 1 DOSAGE FORM, ONCE A DAY
     Route: 048
  45. BROMHEXINE HYDROCHLORIDE [Concomitant]
     Active Substance: BROMHEXINE HYDROCHLORIDE
     Dosage: 8 MILLIGRAM DAILY
     Route: 048
  46. CAPTOPRIL [Concomitant]
     Active Substance: CAPTOPRIL
     Indication: Product used for unknown indication
     Dosage: 5 MG, BID (2/DAY)
     Route: 048
  47. POTASSIUM CHLORIDE [Concomitant]
     Active Substance: POTASSIUM CHLORIDE
     Indication: Product used for unknown indication
     Route: 048
  48. LIDOCAINE [Concomitant]
     Active Substance: LIDOCAINE
     Indication: Pain
     Route: 042
  49. LIOTON 1000 [Concomitant]
     Indication: Product used for unknown indication
     Route: 065
  50. LIOTON 1000 [Concomitant]
     Route: 061
  51. LORAZEPAM [Concomitant]
     Active Substance: LORAZEPAM
     Route: 065
  52. LUTEINA [PROGESTERONE] [Concomitant]
     Indication: Product used for unknown indication
     Dosage: 50 MILLIGRAM DAILY;
     Route: 060
  53. PIRACETAM [Concomitant]
     Active Substance: PIRACETAM
     Indication: Product used for unknown indication
     Dosage: 1200 MG, BID (2/DAY)
     Route: 048
  54. ALLOPURINOL [Concomitant]
     Active Substance: ALLOPURINOL
     Indication: Product used for unknown indication
     Route: 048
  55. ALLOPURINOL [Concomitant]
     Active Substance: ALLOPURINOL
     Dosage: 150 MILLIGRAM DAILY;
     Route: 065
  56. ALLOPURINOL [Concomitant]
     Active Substance: ALLOPURINOL
     Dosage: 0.5 DOSAGE FORM, ONCE A DAY
     Route: 048
  57. MIZODIN [Concomitant]
     Indication: Product used for unknown indication
     Dosage: 0.5 MILLIGRAM, TWO TIMES A DAY
     Route: 048
  58. MIZODIN [Concomitant]
     Dosage: 250 MILLIGRAM DAILY
     Route: 048
  59. NITRENDIPINE EGIS [Concomitant]
     Indication: Product used for unknown indication
     Dosage: 10 MG, 1X PER DAY
     Route: 048
  60. NITRENDIPINE EGIS [Concomitant]
     Dosage: 0.5 DOSAGE FORM, ONCE A DAY
     Route: 048
  61. NITRENDIPINE EGIS [Concomitant]
     Route: 065
  62. DROTAVERINE HYDROCHLORIDE [Concomitant]
     Active Substance: DROTAVERINE HYDROCHLORIDE
     Route: 048
  63. PENTOXIFYLLINE [Concomitant]
     Active Substance: PENTOXIFYLLINE
     Indication: Pain
     Route: 065
  64. Phlegamine [Concomitant]
     Indication: Product used for unknown indication
     Dosage: 8 MG, 1X PER DAY
     Route: 065
  65. CALCIUM CARBONATE [Concomitant]
     Active Substance: CALCIUM CARBONATE
     Dosage: (UNITS AND DOSE NOT PROVIDED), BID (2/DAY)
     Route: 048
  66. TIANEPTINE [Concomitant]
     Active Substance: TIANEPTINE
     Indication: Product used for unknown indication
     Route: 065
  67. TOLPERISONE [Concomitant]
     Active Substance: TOLPERISONE
     Indication: Myalgia
     Route: 065
  68. TORECAN [Concomitant]
     Active Substance: THIETHYLPERAZINE MALATE
     Dosage: 6.5 MILLIGRAM DAILY;
     Route: 048
  69. ETOFENAMATE [Concomitant]
     Active Substance: ETOFENAMATE
     Indication: Product used for unknown indication
     Route: 061
  70. RHAMNUS CATHARTICA [Concomitant]
     Indication: Product used for unknown indication
     Dosage: (DOSE AND UNITS NOT PROVIDED), BID (2/DAY)
     Route: 048
  71. ULGIX LAXI [Concomitant]
     Indication: Product used for unknown indication
     Dosage: (DOSE AND UNITS NOT PROVIDED) TID (3/DAY)
     Route: 048
  72. SIMETHICONE (DIMETHICONE) [Concomitant]
     Active Substance: DIMETHICONE
     Indication: Product used for unknown indication
     Route: 048
  73. UROSEPT [HERBAL EXTRACT NOS] [Concomitant]
     Indication: Product used for unknown indication
     Dosage: 2 DOSAGE FORMS DAILY;
     Route: 048
  74. VITAMIN D3 [Concomitant]
     Active Substance: CHOLECALCIFEROL
     Indication: Product used for unknown indication
     Dosage: 4000 IU (INTERNATIONAL UNIT) DAILY;
     Route: 048
  75. FENTANYL [Suspect]
     Active Substance: FENTANYL
     Indication: Pain
     Route: 062
  76. DIMETHICONE [Concomitant]
     Active Substance: DIMETHICONE
     Indication: Product used for unknown indication
     Dosage: 2 (UNKNOWN UNITS), BID (2/DAY)
     Route: 048

REACTIONS (19)
  - Intentional product misuse [Unknown]
  - Intentional product use issue [Unknown]
  - Product use in unapproved indication [Unknown]
  - Drug ineffective [Unknown]
  - Contraindicated product administered [Unknown]
  - Obstruction [Unknown]
  - Constipation [Recovering/Resolving]
  - Asthenia [Unknown]
  - Drug tolerance decreased [Unknown]
  - Affective disorder [Recovered/Resolved]
  - Mental disorder [Unknown]
  - Drug use disorder [Unknown]
  - Drug withdrawal syndrome [Unknown]
  - Hypotension [Unknown]
  - Drug dependence [Not Recovered/Not Resolved]
  - Pain [Unknown]
  - Anxiety [Recovering/Resolving]
  - Myalgia [Recovering/Resolving]
  - Chills [Recovering/Resolving]

NARRATIVE: CASE EVENT DATE: 20170101
